FAERS Safety Report 10394198 (Version 2)
Quarter: 2014Q3

REPORT INFORMATION
  Report Type: Spontaneous
  Country: JP (occurrence: JP)
  Receive Date: 20140819
  Receipt Date: 20140907
  Transmission Date: 20150326
  Serious: Yes (Other)
  Sender: FDA-Public Use
  Company Number: PHHY2014JP102265

PATIENT
  Age: 84 Year
  Sex: Male

DRUGS (2)
  1. GLIVEC [Suspect]
     Active Substance: IMATINIB MESYLATE
     Indication: CHRONIC MYELOID LEUKAEMIA
     Dosage: 200 MG, PER DAY
     Dates: start: 20030101
  2. GLIVEC [Suspect]
     Active Substance: IMATINIB MESYLATE
     Dosage: UNK DOSE INCREASED

REACTIONS (4)
  - Mental disorder [Unknown]
  - Renal impairment [Unknown]
  - Bone marrow failure [Unknown]
  - Muscle spasms [Unknown]
